FAERS Safety Report 4801940-1 (Version None)
Quarter: 2005Q4

REPORT INFORMATION
  Report Type: 
  Country: None (occurrence: None)
  Receive Date: 20051014
  Receipt Date: 20051014
  Transmission Date: 20060501
  Serious: Yes (Other)
  Sender: FDA-Public Use
  Company Number: None

PATIENT
  Sex: Female

DRUGS (2)
  1. VIOXX [Suspect]
     Indication: LIMB INJURY
     Dosage: 12.5 - 25 MG DAILY ORAL
     Route: 048
     Dates: start: 20000901, end: 20020401
  2. VIOXX [Suspect]
     Indication: SURGERY
     Dosage: 12.5 - 25 MG DAILY ORAL
     Route: 048
     Dates: start: 20000901, end: 20020401

REACTIONS (1)
  - CEREBROVASCULAR ACCIDENT [None]
